FAERS Safety Report 7466862-9 (Version None)
Quarter: 2011Q2

REPORT INFORMATION
  Report Type: 
  Country: None (occurrence: None)
  Receive Date: 20110509
  Receipt Date: 20110425
  Transmission Date: 20111010
  Serious: Yes (Other)
  Sender: FDA-Public Use
  Company Number: TW-JNJFOC-20110500446

PATIENT
  Age: 40 Year
  Sex: Male

DRUGS (2)
  1. NICORETTE [Suspect]
     Indication: SMOKING CESSATION THERAPY
     Dosage: 3-4 CARTRIDGES PER DAY
     Route: 055
  2. NICORETTE [Suspect]
     Dosage: } 1 CARTRIDGE PER 2-3 DAYS
     Route: 055

REACTIONS (3)
  - INCORRECT DRUG ADMINISTRATION DURATION [None]
  - DRUG DEPENDENCE [None]
  - SENSORY DISTURBANCE [None]
